FAERS Safety Report 8268572-7 (Version None)
Quarter: 2012Q2

REPORT INFORMATION
  Report Type: 
  Country: None (occurrence: None)
  Receive Date: 20120409
  Receipt Date: 20120330
  Transmission Date: 20120825
  Serious: Yes (Other)
  Sender: FDA-Public Use
  Company Number: CH-BAYER-2012-030911

PATIENT
  Age: 46 Year
  Sex: Female

DRUGS (4)
  1. ASPIRIN [Suspect]
     Route: 048
  2. ACETAMINOPHEN [Suspect]
     Route: 048
  3. LAMICTAL [Suspect]
     Route: 048
  4. MEFENAMIC ACID [Suspect]
     Route: 048

REACTIONS (2)
  - THROMBOCYTOPENIA [None]
  - LEUKOPENIA [None]
